FAERS Safety Report 7121560-6 (Version None)
Quarter: 2010Q4

REPORT INFORMATION
  Report Type: 
  Country: None (occurrence: None)
  Receive Date: 20101124
  Receipt Date: 20101117
  Transmission Date: 20110411
  Serious: Yes (Other)
  Sender: FDA-Public Use
  Company Number: FR-BAXTER-2010BH025351

PATIENT
  Age: 35 Month
  Sex: Male
  Weight: 14 kg

DRUGS (8)
  1. CYCLOPHOSPHAMIDE [Suspect]
     Indication: NON-HODGKIN'S LYMPHOMA
     Route: 042
     Dates: start: 20100813, end: 20100817
  2. DIPRIVAN [Concomitant]
     Indication: SEDATION
     Route: 042
     Dates: end: 20100817
  3. SUFENTA PRESERVATIVE FREE [Concomitant]
     Indication: PAIN
     Route: 042
     Dates: start: 20100812, end: 20100816
  4. METHYLPREDNISOLONE [Concomitant]
     Indication: LYMPHOMA
     Route: 042
     Dates: start: 20100812, end: 20100819
  5. NORCURON [Concomitant]
     Indication: PRODUCT USED FOR UNKNOWN INDICATION
     Route: 065
  6. FASTURTEC [Concomitant]
     Indication: PRODUCT USED FOR UNKNOWN INDICATION
     Route: 065
  7. ZOPHREN [Concomitant]
     Indication: PRODUCT USED FOR UNKNOWN INDICATION
     Route: 065
  8. HEPARIN [Concomitant]
     Indication: PRODUCT USED FOR UNKNOWN INDICATION
     Route: 065

REACTIONS (1)
  - NERVOUS SYSTEM DISORDER [None]
